FAERS Safety Report 8394984-7 (Version None)
Quarter: 2012Q2

REPORT INFORMATION
  Report Type: 
  Country: None (occurrence: None)
  Receive Date: 20120530
  Receipt Date: 20120329
  Transmission Date: 20120825
  Serious: Yes (Hospitalization)
  Sender: FDA-Public Use
  Company Number: US-GLAXOSMITHKLINE-A0972389A

PATIENT
  Age: 44 Year
  Sex: Female

DRUGS (2)
  1. FLOLAN [Suspect]
     Indication: PULMONARY ARTERIAL HYPERTENSION
     Dosage: 17NGKM SEE DOSAGE TEXT
     Route: 042
     Dates: start: 20101119
  2. TRACLEER [Concomitant]
     Dosage: 125MG TWICE PER DAY

REACTIONS (2)
  - ABDOMINAL PAIN [None]
  - VOMITING [None]
